FAERS Safety Report 8874057 (Version 2)
Quarter: 2012Q4

REPORT INFORMATION
  Report Type: Report from Study
  Country: GB (occurrence: GB)
  Receive Date: 20121031
  Receipt Date: 20121121
  Transmission Date: 20130627
  Serious: Yes (Death)
  Sender: FDA-Public Use
  Company Number: GB-AMGEN-GBRCT2012067368

PATIENT
  Age: 70 Year
  Sex: Male
  Weight: 77 kg

DRUGS (2)
  1. ETANERCEPT [Suspect]
     Indication: RHEUMATOID ARTHRITIS
     Dosage: 25 mg, 2 times/wk
     Dates: start: 20040902, end: 20110714
  2. SULPHASALAZINE [Concomitant]
     Dosage: UNK

REACTIONS (5)
  - Bronchial carcinoma [Fatal]
  - Emphysema [Fatal]
  - Myocardial ischaemia [Fatal]
  - Rheumatoid arthritis [Fatal]
  - Cardiac failure [Fatal]
